FAERS Safety Report 4475277-7 (Version None)
Quarter: 2004Q4

REPORT INFORMATION
  Report Type: 
  Country: None (occurrence: None)
  Receive Date: 20041015
  Receipt Date: 20030130
  Transmission Date: 20050328
  Serious: Yes (Other)
  Sender: FDA-Public Use
  Company Number: PHBS2003IT01545

PATIENT
  Age: 29 Year
  Sex: Female

DRUGS (5)
  1. CYCLOSPORINE [Suspect]
     Indication: SYSTEMIC SCLEROSIS
     Dosage: 3 MG/KG/D
     Route: 065
  2. OMEPRAZOLE [Concomitant]
     Dosage: 20 MG/D
     Route: 065
  3. IRON [Concomitant]
  4. FOLIC ACID [Concomitant]
  5. ILOPROST [Concomitant]

REACTIONS (4)
  - CAESAREAN SECTION [None]
  - DRUG EXPOSURE DURING PREGNANCY [None]
  - PREGNANCY [None]
  - PREMATURE BABY [None]
